FAERS Safety Report 4711715-X (Version None)
Quarter: 2005Q3

REPORT INFORMATION
  Report Type: 
  Country: None (occurrence: None)
  Receive Date: 20050712
  Receipt Date: 20050207
  Transmission Date: 20060218
  Serious: Yes (Other)
  Sender: FDA-Public Use
  Company Number: PHEH2005US01798

PATIENT
  Age: 54 Year
  Sex: Female

DRUGS (10)
  1. ZOMETA [Suspect]
     Indication: METASTASES TO BONE
  2. CYCLOPHOSPHAMIDE [Concomitant]
  3. DOCETAXEL [Concomitant]
  4. RADIATION THERAPY [Concomitant]
  5. LETROZOLE [Concomitant]
  6. EPOTHILONE A [Concomitant]
  7. CAPECITABINE [Concomitant]
  8. FASLODEX [Concomitant]
  9. EXEMESTANE [Concomitant]
  10. DOXORUBICIN [Concomitant]

REACTIONS (3)
  - FAILURE OF IMPLANT [None]
  - INFECTION [None]
  - OSTEONECROSIS [None]
